FAERS Safety Report 5142491-7 (Version None)
Quarter: 2006Q4

REPORT INFORMATION
  Report Type: 
  Country: None (occurrence: None)
  Receive Date: 20061102
  Receipt Date: 20061030
  Transmission Date: 20070319
  Serious: Yes (Hospitalization)
  Sender: FDA-Public Use
  Company Number: JP-SANOFI-SYNTHELABO-F01200602217

PATIENT
  Sex: Male

DRUGS (11)
  1. LENDORMIN [Concomitant]
     Dosage: 0.25 MG
     Route: 048
     Dates: start: 20061011, end: 20061013
  2. SELBEX [Concomitant]
     Dosage: 50 MG
     Route: 048
     Dates: start: 20061009, end: 20061023
  3. ZOPHREN ZYDIS [Concomitant]
     Dosage: 1
     Route: 048
     Dates: start: 20061007, end: 20061011
  4. BIO-THREE [Concomitant]
     Dosage: 3
     Route: 048
     Dates: start: 20060923
  5. MAGMITT [Concomitant]
     Dosage: 750 MG
     Route: 048
     Dates: start: 20060923
  6. DECADRON [Concomitant]
     Dosage: 8 MG
     Route: 042
     Dates: start: 20061005, end: 20061005
  7. KYTRIL [Concomitant]
     Dosage: 3 MG
     Route: 042
     Dates: start: 20061005, end: 20061005
  8. LOXONIN [Concomitant]
     Dosage: 60 MG
     Route: 048
     Dates: start: 20061007, end: 20061023
  9. BEVACIZUMAB [Suspect]
     Route: 042
     Dates: start: 20061005, end: 20061005
  10. CAPECITABINE [Suspect]
     Route: 048
     Dates: start: 20061005, end: 20061012
  11. OXALIPLATIN [Suspect]
     Indication: RECTAL CANCER
     Route: 041
     Dates: start: 20061005, end: 20061005

REACTIONS (2)
  - EPIDIDYMITIS [None]
  - FATIGUE [None]
